FAERS Safety Report 4477376-2 (Version None)
Quarter: 2004Q4

REPORT INFORMATION
  Report Type: 
  Country: None (occurrence: None)
  Receive Date: 20041013
  Receipt Date: 20041001
  Transmission Date: 20050328
  Serious: No
  Sender: FDA-Public Use
  Company Number: 2004AC00450

PATIENT
  Sex: Male

DRUGS (1)
  1. ZOLADEX [Suspect]
     Indication: PROSTATE CANCER
     Dates: start: 20040301, end: 20040601

REACTIONS (3)
  - ANTINUCLEAR ANTIBODY POSITIVE [None]
  - PERIPHERAL SENSORIMOTOR NEUROPATHY [None]
  - PROSTATIC SPECIFIC ANTIGEN INCREASED [None]
